FAERS Safety Report 15308849 (Version 1)
Quarter: 2018Q3

REPORT INFORMATION
  Report Type: Report from Study
  Country: None (occurrence: CH)
  Receive Date: 20180822
  Receipt Date: 20180822
  Transmission Date: 20181010
  Serious: Yes (Other)
  Sender: FDA-Public Use
  Company Number: CH-ABBVIE-17K-151-2140999-00

PATIENT
  Age: 83 Year
  Sex: Male
  Weight: 53 kg

DRUGS (31)
  1. TRANSIPEG F [Concomitant]
     Indication: PRODUCT USED FOR UNKNOWN INDICATION
     Dosage: IN THE MORNING
     Route: 048
  2. PRAVASTATIN. [Concomitant]
     Active Substance: PRAVASTATIN
     Indication: PRODUCT USED FOR UNKNOWN INDICATION
     Dosage: IN THE EVENING
     Route: 048
  3. DUODOPA [Suspect]
     Active Substance: CARBIDOPA\LEVODOPA
     Dosage: MORNING DOSE: 6ML, CONTINUOUS RATE: 1.9ML/H, EXTRA DOSE: 1ML, 16H THERAPY
     Route: 050
     Dates: start: 20150304, end: 20171018
  4. DUODOPA [Suspect]
     Active Substance: CARBIDOPA\LEVODOPA
     Dosage: MD: 6ML?CD: 2.1ML/H?ED: 1ML?LOCK TIMES BETWEEN EXTRA DOSES: 1H?16H THERAPY
     Route: 050
     Dates: start: 20180809, end: 201808
  5. XANAX [Concomitant]
     Active Substance: ALPRAZOLAM
     Indication: PRODUCT USED FOR UNKNOWN INDICATION
     Dosage: AT NIGHT TIME
     Route: 048
  6. PARACETAMOL [Concomitant]
     Active Substance: ACETAMINOPHEN
     Indication: PRODUCT USED FOR UNKNOWN INDICATION
     Dosage: AS NEEDED
     Route: 048
  7. TIMOPTIC [Concomitant]
     Active Substance: TIMOLOL MALEATE
     Indication: PRODUCT USED FOR UNKNOWN INDICATION
  8. CARBIDOPA/LEVODOPA [Concomitant]
     Active Substance: CARBIDOPA\LEVODOPA
     Indication: PRODUCT USED FOR UNKNOWN INDICATION
     Dosage: 25/100 MG AT NIGHT TIME
     Route: 048
  9. RIVOTRIL [Concomitant]
     Active Substance: CLONAZEPAM
     Indication: PRODUCT USED FOR UNKNOWN INDICATION
     Dosage: AT NIGHT TIME
     Route: 048
  10. TEMESTA EXPIDET [Concomitant]
     Active Substance: LORAZEPAM
     Indication: PRODUCT USED FOR UNKNOWN INDICATION
     Dosage: AS NEEDED
     Route: 048
  11. FRESUBIN [Concomitant]
     Active Substance: AMINO ACIDS\DEXTROSE\ELECTROLYTES NOS\SOYBEAN OIL\VITAMINS
     Indication: PRODUCT USED FOR UNKNOWN INDICATION
     Dosage: AS NEEDED
  12. DUODOPA [Suspect]
     Active Substance: CARBIDOPA\LEVODOPA
     Indication: PRODUCT USED FOR UNKNOWN INDICATION
     Dosage: MORNING DOSE: 6ML, CONTINUOUS RATE: 1.9ML/H, EXTRA DOSE: 1ML, 16H THERAPY
     Route: 050
     Dates: start: 20150302, end: 20150304
  13. MADOPAR LIQ [Concomitant]
     Indication: PRODUCT USED FOR UNKNOWN INDICATION
     Dosage: AS NEEDED, IN THE MORNING
     Route: 048
  14. MAGNESIUM [Concomitant]
     Active Substance: MAGNESIUM
     Indication: PRODUCT USED FOR UNKNOWN INDICATION
     Dosage: IN THE EVENING
     Route: 048
  15. METO ZEROK [Concomitant]
     Active Substance: METOPROLOL SUCCINATE
     Indication: PRODUCT USED FOR UNKNOWN INDICATION
     Dosage: ONCE, AS NEEDED
     Route: 048
  16. XARELTO [Concomitant]
     Active Substance: RIVAROXABAN
     Indication: PRODUCT USED FOR UNKNOWN INDICATION
     Dosage: IN THE EVENING
     Route: 048
  17. VITARUBIN [Concomitant]
     Active Substance: CYANOCOBALAMIN
     Indication: PRODUCT USED FOR UNKNOWN INDICATION
     Route: 030
  18. DUODOPA [Suspect]
     Active Substance: CARBIDOPA\LEVODOPA
     Dosage: 16TH THERAPY?MORNING DOSE: 6ML?CONTINUOUS DOSE: 1.9ML/H?EXTRA DOSE: 1ML
     Route: 050
     Dates: start: 20180411, end: 20180525
  19. DUODOPA [Suspect]
     Active Substance: CARBIDOPA\LEVODOPA
     Dosage: MORNING DOSE: 6ML?CD: 2.1ML/H?ED: 1ML?LOCK TIMES BETWEEN EXTRA DOSES: 1H?16H THERAPY
     Route: 050
     Dates: start: 20180525, end: 20180805
  20. DUODOPA [Suspect]
     Active Substance: CARBIDOPA\LEVODOPA
     Dosage: MORNING DOSE: 6ML?CD: 2.1ML/H?ED: 1ML?LOCK TIMES BETWEEN EXTRA DOSES: 1H?16TH THERAPY
     Route: 050
     Dates: start: 20180805, end: 20180809
  21. TARDYFERON [Concomitant]
     Active Substance: FERROUS SULFATE
     Indication: PRODUCT USED FOR UNKNOWN INDICATION
     Dosage: IN THE EVENING
     Route: 048
  22. FOLIC ACID. [Concomitant]
     Active Substance: FOLIC ACID
     Indication: PRODUCT USED FOR UNKNOWN INDICATION
     Dosage: IN THE MORNING
     Route: 048
  23. EXCIPIAL [Concomitant]
     Indication: PRODUCT USED FOR UNKNOWN INDICATION
  24. DUODOPA [Suspect]
     Active Substance: CARBIDOPA\LEVODOPA
     Dosage: MORNING DOSE: 6ML, CONTINUOUS RATE: 1.9ML/H, EXTRA DOSE: 1ML, 16H THERAPY
     Route: 050
     Dates: start: 20171018, end: 20171018
  25. XENALON [Concomitant]
     Indication: PRODUCT USED FOR UNKNOWN INDICATION
     Dosage: IN THE MORNING
     Route: 048
  26. LACRIMON [Concomitant]
     Indication: PRODUCT USED FOR UNKNOWN INDICATION
  27. DUODOPA [Suspect]
     Active Substance: CARBIDOPA\LEVODOPA
     Dosage: MORNING DOSE: 6ML, CONTINUOUS RATE: 1.9ML/H, EXTRA DOSE: 1ML, 16H THERAPY
     Route: 050
     Dates: start: 20171018, end: 20180411
  28. DUODOPA [Suspect]
     Active Substance: CARBIDOPA\LEVODOPA
     Dosage: RUNNING FROM 7:30AM UNTIL 9PM
     Route: 050
     Dates: start: 201808
  29. ESCITALOPRAM [Concomitant]
     Active Substance: ESCITALOPRAM OXALATE
     Indication: PRODUCT USED FOR UNKNOWN INDICATION
     Dosage: IN THE MORNING
  30. ISOKET SPRAY [Concomitant]
     Indication: PRODUCT USED FOR UNKNOWN INDICATION
     Dosage: ONCE, AS NEEDED
     Route: 062
  31. TRIOFAN [Concomitant]
     Active Substance: XYLOMETAZOLINE
     Indication: PRODUCT USED FOR UNKNOWN INDICATION
     Dosage: 3?4 TIMES, AS NEEDED

REACTIONS (24)
  - Dysphonia [Unknown]
  - Device colour issue [Unknown]
  - Diet refusal [Unknown]
  - Device occlusion [Recovered/Resolved]
  - Stoma site hypergranulation [Not Recovered/Not Resolved]
  - Mobility decreased [Unknown]
  - Hypoacusis [Unknown]
  - Off label use [Recovered/Resolved]
  - Hyperkinesia [Unknown]
  - Freezing phenomenon [Unknown]
  - Device alarm issue [Recovered/Resolved]
  - Off label use [Recovered/Resolved]
  - Device occlusion [Recovered/Resolved]
  - Depression [Unknown]
  - Stoma site reaction [Unknown]
  - Lens dislocation [Unknown]
  - Cataract [Unknown]
  - Device kink [Recovered/Resolved]
  - Stoma site discharge [Unknown]
  - Intentional product use issue [Recovered/Resolved]
  - Feeding intolerance [Unknown]
  - Device occlusion [Recovered/Resolved]
  - Weight decreased [Unknown]
  - Dyskinesia [Unknown]

NARRATIVE: CASE EVENT DATE: 2017
